FAERS Safety Report 8244104-4 (Version None)
Quarter: 2012Q1

REPORT INFORMATION
  Report Type: 
  Country: None (occurrence: None)
  Receive Date: 20120329
  Receipt Date: 20120320
  Transmission Date: 20120608
  Serious: Yes (Hospitalization, Other)
  Sender: FDA-Public Use
  Company Number: ES-ABBOTT-12P-144-0918619-00

PATIENT
  Age: 31 Year
  Sex: Female

DRUGS (5)
  1. HUMIRA [Suspect]
     Route: 058
     Dates: start: 20100701
  2. IMURAN [Concomitant]
     Dosage: DAILY
     Route: 048
     Dates: start: 20081201
  3. IMURAN [Concomitant]
     Indication: CROHN'S DISEASE
     Dosage: DAILY
     Route: 048
     Dates: start: 20050101, end: 20080801
  4. HUMIRA [Suspect]
     Indication: CROHN'S DISEASE
     Route: 058
     Dates: start: 20051001, end: 20071001
  5. HUMIRA [Suspect]
     Route: 058
     Dates: start: 20080201, end: 20090201

REACTIONS (4)
  - COLITIS [None]
  - INFLAMMATORY BOWEL DISEASE [None]
  - COLONIC STENOSIS [None]
  - CROHN'S DISEASE [None]
